FAERS Safety Report 13801045 (Version 1)
Quarter: 2017Q3

REPORT INFORMATION
  Report Type: Spontaneous
  Country: GB (occurrence: GB)
  Receive Date: 20170727
  Receipt Date: 20170727
  Transmission Date: 20171127
  Serious: Yes (Hospitalization, Other)
  Sender: FDA-Public Use
  Company Number: GB-GLAXOSMITHKLINE-GB2017036964

PATIENT
  Age: 51 Year
  Sex: Male

DRUGS (14)
  1. NICOTINE. [Concomitant]
     Active Substance: NICOTINE
     Dosage: 1 DF, UNK,14MG/24 HOURS. USED AS DIRECTED.
     Route: 062
  2. CINNARIZINE [Concomitant]
     Active Substance: CINNARIZINE
     Dosage: STOPPED DUE TO AKI
     Route: 065
  3. MIRTAZAPINE. [Concomitant]
     Active Substance: MIRTAZAPINE
     Dosage: AT NIGHT
     Route: 065
  4. ATORVASTATIN [Concomitant]
     Active Substance: ATORVASTATIN
     Dosage: STOPPED DUE TO AKI
     Route: 065
  5. ACICLOVIR [Suspect]
     Active Substance: ACYCLOVIR
     Indication: ENCEPHALITIS VIRAL
     Dosage: 850 MG, TID
     Route: 042
     Dates: start: 20170104, end: 20170112
  6. VENSIR XL PROLONGED RELEASE [Concomitant]
     Active Substance: VENLAFAXINE HYDROCHLORIDE
  7. DOCUSATE [Concomitant]
     Active Substance: DOCUSATE
     Dosage: PATIENT NOT TAKING AT THE MOMENT
     Route: 065
  8. GABAPENTIN. [Concomitant]
     Active Substance: GABAPENTIN
     Dosage: DOSE REDUCED FROM 300MG THREE TIMES A DAY IN INTENSIVE CASE UNIT ON LAST ADMISSION
     Route: 065
  9. VENLAFAXINE [Concomitant]
     Active Substance: VENLAFAXINE HYDROCHLORIDE
     Dosage: 150 MG, UNK
     Route: 065
  10. NITROFURANTOIN. [Concomitant]
     Active Substance: NITROFURANTOIN
     Dosage: PATIENT HAS ONLY TAKEN 3 DOSES.
     Route: 065
  11. OMEPRAZOLE. [Concomitant]
     Active Substance: OMEPRAZOLE
     Dosage: 20 MG, QD
     Route: 065
  12. VENSIR XL [Concomitant]
     Active Substance: VENLAFAXINE HYDROCHLORIDE
     Dosage: 150 MG, QD
     Route: 065
  13. DALTEPARIN [Concomitant]
     Active Substance: DALTEPARIN
     Dosage: REDUCED TO 2500 UNITS
     Route: 065
     Dates: start: 20170104, end: 20170112
  14. AIROMIR AUTOHALER [Concomitant]
     Active Substance: ALBUTEROL SULFATE
     Dosage: 200 UG, UNK
     Route: 055

REACTIONS (3)
  - Abnormal behaviour [Recovered/Resolved]
  - Acute kidney injury [Recovered/Resolved]
  - Confusional state [Recovered/Resolved]

NARRATIVE: CASE EVENT DATE: 20170111
